FAERS Safety Report 21222293 (Version 4)
Quarter: 2023Q1

REPORT INFORMATION
  Report Type: Report from Study
  Country: US (occurrence: US)
  Receive Date: 20220817
  Receipt Date: 20230206
  Transmission Date: 20230418
  Serious: No
  Sender: FDA-Public Use
  Company Number: US-BIOVITRUM-2022US09590

PATIENT
  Sex: Female

DRUGS (25)
  1. KINERET [Suspect]
     Active Substance: ANAKINRA
     Indication: Product used for unknown indication
  2. PROMETHAZINE [Concomitant]
     Active Substance: PROMETHAZINE HYDROCHLORIDE
     Dosage: PRN
  3. MIRTAZAPINE [Concomitant]
     Active Substance: MIRTAZAPINE
  4. ACETAMINOPHEN (OTC) [Concomitant]
  5. DICLOFENAC SODIUM [Concomitant]
     Active Substance: DICLOFENAC SODIUM
  6. VANCOMYCIN [Concomitant]
     Active Substance: VANCOMYCIN
  7. CHOLECALCIFEROL (OTC) [Concomitant]
  8. DIPHENHYDRAMINE (OTC) [Concomitant]
  9. VITAMINS [Concomitant]
     Active Substance: VITAMINS
  10. LORAZEPAM [Concomitant]
     Active Substance: LORAZEPAM
  11. METHOTREXATE [Concomitant]
     Active Substance: METHOTREXATE
  12. POTASSIUM CHLORIDE [Concomitant]
     Active Substance: POTASSIUM CHLORIDE
  13. GABAPENTIN [Concomitant]
     Active Substance: GABAPENTIN
  14. AMOXICILLING [Concomitant]
  15. FAMOTIDINE (OTC) [Concomitant]
  16. CETIRIZINE (OTC) [Concomitant]
  17. TIZANIDINE [Concomitant]
     Active Substance: TIZANIDINE
  18. QUETIAPINE FUMARATE [Concomitant]
     Active Substance: QUETIAPINE FUMARATE
  19. HYDROXYZINE HYDROCHLORIDE [Concomitant]
     Active Substance: HYDROXYZINE HYDROCHLORIDE
  20. CYANOCOBALAMIN (OTC) [Concomitant]
  21. CALCIUM (OTC) [Concomitant]
  22. DICYCLOMINE [Concomitant]
     Active Substance: DICYCLOMINE HYDROCHLORIDE
  23. CHLORPROMAZINE [Concomitant]
     Active Substance: CHLORPROMAZINE
  24. DOXYCYCLINE HYCLATE [Concomitant]
     Active Substance: DOXYCYCLINE HYCLATE
  25. CLOPIDOGREL [Concomitant]
     Active Substance: CLOPIDOGREL BISULFATE

REACTIONS (7)
  - Loss of personal independence in daily activities [Not Recovered/Not Resolved]
  - Insomnia [Unknown]
  - Blood creatinine increased [Recovered/Resolved]
  - Condition aggravated [Unknown]
  - White blood cell count decreased [Recovered/Resolved]
  - Injection site pain [Unknown]
  - Product dose omission issue [Unknown]
